FAERS Safety Report 9097246 (Version 1)
Quarter: 2013Q1

REPORT INFORMATION
  Report Type: Spontaneous
  Country: US (occurrence: US)
  Receive Date: 20130212
  Receipt Date: 20130212
  Transmission Date: 20140127
  Serious: Yes (Other)
  Sender: FDA-Public Use
  Company Number: US-BAYER-2013-018258

PATIENT
  Age: 71 Year
  Sex: Male
  Weight: 76.2 kg

DRUGS (7)
  1. XARELTO [Suspect]
     Indication: EMBOLISM
     Route: 048
     Dates: start: 201211
  2. ACETYLSALICYLIC ACID [Interacting]
     Indication: STENT PLACEMENT
     Dosage: 325 MG, QD
     Route: 048
     Dates: start: 2012
  3. ACETYLSALICYLIC ACID [Interacting]
     Indication: STENT PLACEMENT
  4. CILOSTAZOL [Interacting]
     Indication: ANTIPLATELET THERAPY
     Dosage: 50 MG, BID
     Route: 048
     Dates: start: 2011
  5. COREG [Concomitant]
     Indication: CARDIAC DISORDER
     Dosage: 25 MG, QD
     Route: 048
     Dates: start: 2012
  6. NORVASC [Concomitant]
     Indication: CARDIOVASCULAR DISORDER
     Dosage: 10 MG, QD
     Route: 048
     Dates: start: 2010
  7. LISINOPRIL [Concomitant]
     Indication: CARDIAC DISORDER
     Dosage: 40 MG, QD
     Route: 048
     Dates: start: 2001

REACTIONS (10)
  - Epistaxis [Not Recovered/Not Resolved]
  - Gingival bleeding [Not Recovered/Not Resolved]
  - Drug interaction [None]
  - Adverse event [Not Recovered/Not Resolved]
  - Headache [Not Recovered/Not Resolved]
  - Abdominal pain [Not Recovered/Not Resolved]
  - Asthenia [Not Recovered/Not Resolved]
  - Diarrhoea [Not Recovered/Not Resolved]
  - Hypotension [Not Recovered/Not Resolved]
  - Adverse drug reaction [Not Recovered/Not Resolved]
